FAERS Safety Report 24406832 (Version 1)
Quarter: 2024Q4

REPORT INFORMATION
  Report Type: Spontaneous
  Country: CN (occurrence: CN)
  Receive Date: 20241007
  Receipt Date: 20241007
  Transmission Date: 20250115
  Serious: Yes (Hospitalization, Other)
  Sender: BAXTER
  Company Number: None

PATIENT
  Age: 50 Year
  Sex: Female
  Weight: 45 kg

DRUGS (18)
  1. CYCLOPHOSPHAMIDE [Suspect]
     Active Substance: CYCLOPHOSPHAMIDE
     Indication: Lymphoma
     Dosage: 1.53 G, ONE TIME IN ONE DAY, DILUTED WITH 100 ML OF 0.9% SODIUM CHLORIDE, AS A PART OF R-DA-EPOCH RE
     Route: 041
     Dates: start: 20240902, end: 20240902
  2. CYCLOPHOSPHAMIDE [Suspect]
     Active Substance: CYCLOPHOSPHAMIDE
     Indication: Diffuse large B-cell lymphoma
  3. SODIUM CHLORIDE [Suspect]
     Active Substance: SODIUM CHLORIDE
     Indication: Medication dilution
     Dosage: (0.9%) 100 ML, ONE TIME IN ONE DAY, USED TO DILUTE 1.53 G OF CYCLOPHOSPHAMIDE, PART OF R-DA-EPOCH RE
     Route: 041
     Dates: start: 20240902, end: 20240902
  4. SODIUM CHLORIDE [Suspect]
     Active Substance: SODIUM CHLORIDE
     Dosage: (0.9%) 200 ML, ONE TIME IN ONE DAY, USED TO DILUTE 200 MG OF RITUXIMAB, PART OF R-DA-EPOCH REGIMEN
     Route: 041
  5. SODIUM CHLORIDE [Suspect]
     Active Substance: SODIUM CHLORIDE
     Dosage: (0.9%) 500 ML, ONE TIME IN ONE DAY, USED TO DILUTE 500 MG OF RITUXIMAB, PART OF R-DA-EPOCH REGIMEN
     Route: 041
  6. SODIUM CHLORIDE [Suspect]
     Active Substance: SODIUM CHLORIDE
     Dosage: (0.9%) 290 ML, ONE TIME IN ONE DAY, D2-D5, USED TO DILUTE 0.5 MG VINCRISTINE, 0.096 G ETOPOSIDE, AS
     Route: 050
     Dates: start: 20240829, end: 20240901
  7. SODIUM CHLORIDE [Suspect]
     Active Substance: SODIUM CHLORIDE
     Dosage: (0.9%) 290 ML, ONE TIME IN ONE DAY, D2-D5, USED TO DILUTE, 0.096 G ETOPOSIDE, 0.5 MG VINCRISTINE, AS
     Route: 050
     Dates: start: 20240829, end: 20240901
  8. DEXTROSE [Suspect]
     Active Substance: DEXTROSE MONOHYDRATE
     Indication: Medication dilution
     Dosage: (5%) 290 ML, ONE TIME IN ONE DAY, D2-D5, USED TO DILUTE 20 MG OF PIRARUBICIN HYDROCHLORIDE, AS A PAR
     Route: 041
     Dates: start: 20240829, end: 20240901
  9. ETOPOSIDE [Suspect]
     Active Substance: ETOPOSIDE
     Indication: Lymphoma
     Dosage: 0.096 G ETOPOSIDE, 0.5 MG VINCRISTINE, ONE TIME IN ONE DAY, D2-D5, DILUTED WITH 290 ML OF 0.9% SODIU
     Route: 050
     Dates: start: 20240829, end: 20240901
  10. ETOPOSIDE [Suspect]
     Active Substance: ETOPOSIDE
     Indication: Diffuse large B-cell lymphoma
  11. PIRARUBICIN [Suspect]
     Active Substance: PIRARUBICIN
     Indication: Lymphoma
     Dosage: 20 MG, ONE TIME IN ONE DAY, D2-D5, DILUTED WITH 290 ML OF 5% GLUCOSE, AS A PART OF R-DA-EPOCH REGIME
     Route: 041
     Dates: start: 20240829, end: 20240902
  12. PIRARUBICIN [Suspect]
     Active Substance: PIRARUBICIN
     Indication: Diffuse large B-cell lymphoma
  13. VINCRISTINE SULFATE [Suspect]
     Active Substance: VINCRISTINE SULFATE
     Indication: Lymphoma
     Dosage: 0.5 MG VINCRISTINE, 0.096 G ETOPOSIDE, ONE TIME IN ONE DAY, D2-D5, DILUTED WITH 290 ML OF 0.9% SODIU
     Route: 050
     Dates: start: 20240829, end: 20240901
  14. VINCRISTINE SULFATE [Suspect]
     Active Substance: VINCRISTINE SULFATE
     Indication: Diffuse large B-cell lymphoma
  15. RITUXIMAB [Suspect]
     Active Substance: RITUXIMAB
     Indication: Lymphoma
     Dosage: 500 MG, ONE TIME IN ONE DAY, DILUTED WITH 500 ML OF 0.9% SODIUM CHLORIDE, AS A PART OF R-DA-EPOCH RE
     Route: 041
  16. RITUXIMAB [Suspect]
     Active Substance: RITUXIMAB
     Indication: Diffuse large B-cell lymphoma
     Dosage: 200 MG, ONE TIME IN ONE DAY, DILUTED WITH 200 ML OF 0.9% SODIUM CHLORIDE, AS A PART OF R-DA-EPOCH RE
     Route: 041
  17. RITUXIMAB [Suspect]
     Active Substance: RITUXIMAB
     Dosage: 600 MG, ONE TIME IN ONE DAY
     Route: 041
     Dates: start: 20240828, end: 20240828
  18. PREDNISONE [Suspect]
     Active Substance: PREDNISONE
     Indication: Diffuse large B-cell lymphoma
     Dosage: UNK, AS A PART OF R-DA-EPOCH REGIMEN
     Route: 065

REACTIONS (1)
  - Myelosuppression [Recovering/Resolving]

NARRATIVE: CASE EVENT DATE: 20240903
